FAERS Safety Report 20321009 (Version 3)
Quarter: 2022Q1

REPORT INFORMATION
  Report Type: Spontaneous
  Country: US (occurrence: US)
  Receive Date: 20220111
  Receipt Date: 20220305
  Transmission Date: 20220423
  Serious: No
  Sender: FDA-Public Use
  Company Number: US-JNJFOC-20220106829

PATIENT
  Age: 48 Year
  Sex: Female

DRUGS (1)
  1. TREMFYA [Suspect]
     Active Substance: GUSELKUMAB
     Indication: Psoriatic arthropathy
     Route: 065

REACTIONS (4)
  - Product dose omission issue [Unknown]
  - Device malfunction [Unknown]
  - Needle issue [Unknown]
  - Product leakage [Unknown]

NARRATIVE: CASE EVENT DATE: 20210101
